FAERS Safety Report 17461072 (Version 1)
Quarter: 2020Q1

REPORT INFORMATION
  Report Type: Spontaneous
  Country: JP (occurrence: JP)
  Receive Date: 20200226
  Receipt Date: 20200226
  Transmission Date: 20200409
  Serious: Yes (Life-Threatening, Hospitalization, Other)
  Sender: FDA-Public Use
  Company Number: JP-PFIZER INC-2020080717

PATIENT
  Age: 64 Year
  Sex: Female

DRUGS (20)
  1. PREDNISOLONE. [Suspect]
     Active Substance: PREDNISOLONE
     Indication: POLYMYOSITIS
     Dosage: 5 MG, 1X/DAY
  2. RITUXIMAB. [Suspect]
     Active Substance: RITUXIMAB
     Indication: B-CELL LYMPHOMA
     Dosage: B-R THERAPY
  3. OBINUTUZUMAB. [Suspect]
     Active Substance: OBINUTUZUMAB
     Dosage: SALVAGE IMMUNOCHEMOTHERAPY
  4. VINCRISTINE [Suspect]
     Active Substance: VINCRISTINE
     Indication: B-CELL LYMPHOMA
     Dosage: RECHOP THERAPY
  5. PREDNISOLONE. [Suspect]
     Active Substance: PREDNISOLONE
     Indication: LYMPHADENOPATHY
     Dosage: SALVAGE IMMUNOCHEMOTHERAPY
  6. VALSARTAN. [Concomitant]
     Active Substance: VALSARTAN
     Indication: HYPERTENSION
  7. DOXORUBICIN HCL [Suspect]
     Active Substance: DOXORUBICIN HYDROCHLORIDE
     Indication: B-CELL LYMPHOMA
     Dosage: UNK, CYCLIC
  8. BENDAMUSTINE [Suspect]
     Active Substance: BENDAMUSTINE
     Indication: B-CELL LYMPHOMA
     Dosage: UNK UNK, CYCLIC
  9. LANSOPRAZOLE. [Concomitant]
     Active Substance: LANSOPRAZOLE
     Indication: GASTROOESOPHAGEAL REFLUX DISEASE
  10. CYCLOPHOSPHAMIDE. [Suspect]
     Active Substance: CYCLOPHOSPHAMIDE
     Indication: B-CELL LYMPHOMA
     Dosage: RECHOP THERAPY
  11. CYCLOPHOSPHAMIDE. [Suspect]
     Active Substance: CYCLOPHOSPHAMIDE
     Indication: LYMPHADENOPATHY
     Dosage: SALVAGE IMMUNOCHEMOTHERAPY
  12. CARBOPLATIN. [Suspect]
     Active Substance: CARBOPLATIN
     Indication: B-CELL LYMPHOMA
     Dosage: UNK UNK, CYCLIC
  13. METHYLPREDNISOLONE. [Suspect]
     Active Substance: METHYLPREDNISOLONE
     Indication: B-CELL LYMPHOMA
     Dosage: UNK, CYCLIC
  14. ETOPOSIDE. [Suspect]
     Active Substance: ETOPOSIDE
     Indication: B-CELL LYMPHOMA
     Dosage: UNK, CYCLIC
  15. OBINUTUZUMAB. [Suspect]
     Active Substance: OBINUTUZUMAB
     Indication: LYMPHADENOPATHY
     Dosage: AFTER ONE CYCLE OF SUBSEQUENT OBINUTUZUMAB MAINTENANCE THERAPY
  16. CYTARABINE. [Suspect]
     Active Substance: CYTARABINE
     Indication: B-CELL LYMPHOMA
     Dosage: HIGH-DOSE
  17. VINCRISTINE [Suspect]
     Active Substance: VINCRISTINE
     Indication: LYMPHADENOPATHY
     Dosage: SALVAGE IMMUNOCHEMOTHERAPY
  18. RITUXIMAB. [Suspect]
     Active Substance: RITUXIMAB
     Dosage: R-ESHAP THERAPY
  19. RITUXIMAB. [Suspect]
     Active Substance: RITUXIMAB
     Dosage: RECHOP THERAPY
  20. PREDNISOLONE. [Suspect]
     Active Substance: PREDNISOLONE
     Indication: B-CELL LYMPHOMA
     Dosage: RECHOP THERAPY

REACTIONS (5)
  - Listeria sepsis [Recovering/Resolving]
  - Cutaneous listeriosis [Recovering/Resolving]
  - Listeria encephalitis [Recovered/Resolved]
  - Listeriosis [Recovering/Resolving]
  - Meningitis listeria [Recovered/Resolved]
